FAERS Safety Report 8166495-5 (Version None)
Quarter: 2012Q1

REPORT INFORMATION
  Report Type: 
  Country: None (occurrence: None)
  Receive Date: 20120227
  Receipt Date: 20110915
  Transmission Date: 20120608
  Serious: No
  Sender: FDA-Public Use
  Company Number: US-MYLANLABS-2011S1019620

PATIENT
  Age: 23 Year
  Sex: Female
  Weight: 63.5 kg

DRUGS (3)
  1. AMNESTEEM [Suspect]
     Indication: ACNE
     Route: 048
     Dates: start: 20110401, end: 20110901
  2. AMNESTEEM [Suspect]
     Route: 048
     Dates: start: 20110914
  3. LITHIUM CARBONATE [Concomitant]

REACTIONS (2)
  - ACNE [None]
  - LIP DRY [None]
